FAERS Safety Report 9716779 (Version 1)
Quarter: 2013Q4

REPORT INFORMATION
  Report Type: Spontaneous
  Country: FR (occurrence: FR)
  Receive Date: 20131127
  Receipt Date: 20131127
  Transmission Date: 20140711
  Serious: Yes (Hospitalization)
  Sender: FDA-Public Use
  Company Number: FR-PFIZER INC-2013332299

PATIENT
  Age: 91 Year
  Sex: Female

DRUGS (8)
  1. DALACINE [Suspect]
     Indication: OSTEOMYELITIS
     Dosage: UNK
     Route: 048
     Dates: start: 201308, end: 201308
  2. RIFADINE [Suspect]
     Indication: OSTEOMYELITIS
     Dosage: UNK
     Route: 048
     Dates: start: 201308, end: 201308
  3. SEROPRAM [Suspect]
     Indication: FOOD INTOLERANCE
     Dosage: UNK
     Route: 048
     Dates: start: 201308, end: 201308
  4. ORBENINE [Concomitant]
     Indication: OSTEOMYELITIS
     Dosage: 6 DF, 1X/DAY
     Dates: start: 20130616, end: 20130628
  5. ORBENINE [Concomitant]
     Dosage: 3 DF, 1X/DAY
     Dates: start: 20130629, end: 20130803
  6. CALCIPARIN [Concomitant]
     Dosage: 0.4 IU, 2X/DAY
     Dates: start: 20130630
  7. TAVANIC [Concomitant]
     Indication: OSTEOMYELITIS
     Dosage: UNK
     Dates: start: 20130803
  8. ROCEPHINE [Concomitant]
     Indication: OSTEOMYELITIS
     Dosage: UNK
     Dates: start: 20130803

REACTIONS (3)
  - Thrombocytopenia [Recovered/Resolved]
  - Cholestasis [Recovering/Resolving]
  - Urticaria [Recovered/Resolved]
